FAERS Safety Report 10294067 (Version 3)
Quarter: 2014Q3

REPORT INFORMATION
  Report Type: Report from Study
  Country: KR (occurrence: KR)
  Receive Date: 20140710
  Receipt Date: 20140826
  Transmission Date: 20150326
  Serious: Yes (Hospitalization)
  Sender: FDA-Public Use
  Company Number: KR-CELGENEUS-286-50794-14063665

PATIENT
  Age: 75 Year
  Sex: Male
  Weight: 40.9 kg

DRUGS (2)
  1. VIDAZA [Suspect]
     Active Substance: AZACITIDINE
     Dosage: 71.1MG/M2
     Route: 058
     Dates: start: 20130722, end: 20130730
  2. VIDAZA [Suspect]
     Active Substance: AZACITIDINE
     Indication: MYELODYSPLASTIC SYNDROME
     Dosage: 73.8MG/M2
     Route: 058
     Dates: start: 20130410

REACTIONS (2)
  - C-reactive protein increased [Recovered/Resolved with Sequelae]
  - Jejunal ulcer [Recovered/Resolved]

NARRATIVE: CASE EVENT DATE: 20130529
